FAERS Safety Report 15372152 (Version 1)
Quarter: 2018Q3

REPORT INFORMATION
  Report Type: Spontaneous
  Country: US (occurrence: US)
  Receive Date: 20180911
  Receipt Date: 20180911
  Transmission Date: 20181010
  Serious: No
  Sender: FDA-Public Use
  Company Number: US-LUNDBECK-DKLU2053514

PATIENT
  Sex: Male

DRUGS (5)
  1. NORTHERA [Suspect]
     Active Substance: DROXIDOPA
     Indication: DIZZINESS
     Route: 048
     Dates: start: 20180821
  2. NORTHERA [Suspect]
     Active Substance: DROXIDOPA
     Indication: SYNCOPE
  3. NORTHERA [Suspect]
     Active Substance: DROXIDOPA
     Indication: AUTONOMIC NEUROPATHY
     Dosage: SCHEDULE A  AND TITRATING
     Route: 048
     Dates: start: 20180721
  4. NORTHERA [Suspect]
     Active Substance: DROXIDOPA
     Indication: HYPOTENSION
  5. NORTHERA [Suspect]
     Active Substance: DROXIDOPA
     Indication: ORTHOSTATIC HYPOTENSION
     Route: 048

REACTIONS (9)
  - Chest discomfort [Unknown]
  - Dyspnoea [Unknown]
  - Balance disorder [Unknown]
  - Sinusitis [Unknown]
  - Blood pressure increased [Unknown]
  - Gait disturbance [Unknown]
  - Headache [Unknown]
  - Dizziness [Unknown]
  - Inappropriate schedule of drug administration [Unknown]
